FAERS Safety Report 5202479-4 (Version None)
Quarter: 2006Q4

REPORT INFORMATION
  Report Type: 
  Country: None (occurrence: None)
  Receive Date: 20061010
  Receipt Date: 20051101
  Transmission Date: 20070319
  Serious: Yes (Hospitalization)
  Sender: FDA-Public Use
  Company Number: 2005P1000520

PATIENT
  Age: 66 Year

DRUGS (3)
  1. RETEPLASE (RETEPLASE) [Suspect]
     Indication: ACUTE MYOCARDIAL INFARCTION
     Dosage: IV
     Route: 042
     Dates: start: 20050503, end: 20050503
  2. ABCIXIMAB (ABCIXIMAB) [Suspect]
     Indication: ACUTE MYOCARDIAL INFARCTION
     Dosage: IV
     Route: 042
     Dates: start: 20050503, end: 20050503
  3. HEPARIN [Concomitant]

REACTIONS (1)
  - MYOCARDIAL INFARCTION [None]
